FAERS Safety Report 16264260 (Version 1)
Quarter: 2019Q2

REPORT INFORMATION
  Report Type: Spontaneous
  Country: US (occurrence: US)
  Receive Date: 20190502
  Receipt Date: 20190502
  Transmission Date: 20190711
  Serious: No
  Sender: FDA-Public Use
  Company Number: US-BAYER-2019-087373

PATIENT
  Age: 81 Year
  Sex: Male
  Weight: 111 kg

DRUGS (2)
  1. ANTICOAGULANT III [Concomitant]
  2. MIRALAX [Suspect]
     Active Substance: POLYETHYLENE GLYCOL 3350
     Indication: GASTROINTESTINAL DISORDER
     Dosage: UNK, 1 CAPFUL EVERY 3 DAYS
     Route: 048

REACTIONS (1)
  - Product use issue [Unknown]
